FAERS Safety Report 9728085 (Version 2)
Quarter: 2013Q4

REPORT INFORMATION
  Report Type: Report from Study
  Country: JP (occurrence: JP)
  Receive Date: 20131204
  Receipt Date: 20131204
  Transmission Date: 20140711
  Serious: Yes (Other)
  Sender: FDA-Public Use
  Company Number: PHHY2013JP002852

PATIENT
  Age: 38 Year
  Sex: Female

DRUGS (6)
  1. LEPONEX / CLOZARIL [Suspect]
     Indication: SCHIZOPHRENIA, PARANOID TYPE
     Dosage: 12.5 MG, UNK
     Route: 048
     Dates: start: 20121205, end: 20130108
  2. AKIRIDEN [Concomitant]
     Dosage: 2 MG, UNK
     Route: 048
     Dates: start: 20121211
  3. FLUNITRAZEPAM [Concomitant]
     Indication: SCHIZOPHRENIA, PARANOID TYPE
     Dosage: 2 MG, UNK
     Route: 048
     Dates: start: 20121218
  4. VOGLIBOSE [Concomitant]
     Dosage: 0.6 MG, UNK
     Route: 048
  5. MAGMITT [Concomitant]
     Dosage: 1320 MG, UNK
     Route: 048
  6. LIMAS [Concomitant]
     Indication: SCHIZOPHRENIA, PARANOID TYPE
     Dosage: 1000 MG, UNK
     Dates: start: 20130305

REACTIONS (7)
  - Neutropenia [Recovered/Resolved]
  - Eosinophil count increased [Recovered/Resolved]
  - Diabetes mellitus [Not Recovered/Not Resolved]
  - Platelet count abnormal [Unknown]
  - Nasopharyngitis [Unknown]
  - Pyrexia [Recovering/Resolving]
  - White blood cell count increased [Recovered/Resolved]
